FAERS Safety Report 13073159 (Version 2)
Quarter: 2017Q1

REPORT INFORMATION
  Report Type: Spontaneous
  Country: ES (occurrence: ES)
  Receive Date: 20161229
  Receipt Date: 20170105
  Transmission Date: 20170428
  Serious: Yes (Hospitalization)
  Sender: FDA-Public Use
  Company Number: ES-PFIZER INC-2013294894

PATIENT
  Age: 16 Year
  Sex: Female

DRUGS (1)
  1. EPINEPHRINE. [Suspect]
     Active Substance: EPINEPHRINE
     Indication: HYPERSENSITIVITY
     Dosage: 300 UG,1 IN 1 TOTAL

REACTIONS (2)
  - Injection site ischaemia [Recovered/Resolved]
  - Drug administered at inappropriate site [Recovered/Resolved]
